FAERS Safety Report 4678403-X (Version None)
Quarter: 2005Q2

REPORT INFORMATION
  Report Type: 
  Country: None (occurrence: None)
  Receive Date: 20050527
  Receipt Date: 20050520
  Transmission Date: 20051028
  Serious: Yes (Hospitalization)
  Sender: FDA-Public Use
  Company Number: TPA2003A00606

PATIENT
  Age: 72 Year
  Sex: Male

DRUGS (7)
  1. PIOGLITAZONE HCL [Suspect]
     Indication: DIABETES MELLITUS NON-INSULIN-DEPENDENT
     Dosage: PER ORAL
     Route: 048
     Dates: start: 20020725, end: 20021206
  2. FUROSEMIDE [Concomitant]
  3. LISINOPRIL [Concomitant]
  4. METOPROLOL TARTRATE [Concomitant]
  5. FELODIPINE (FELODIINE) [Concomitant]
  6. INSULIN [Concomitant]
  7. ATORVASATIN (ATORVASTATIN) [Concomitant]

REACTIONS (3)
  - ASTHENIA [None]
  - LUNG ADENOCARCINOMA METASTATIC [None]
  - METASTASES TO CENTRAL NERVOUS SYSTEM [None]
